FAERS Safety Report 6744741-X (Version None)
Quarter: 2010Q2

REPORT INFORMATION
  Report Type: 
  Country: None (occurrence: None)
  Receive Date: 20100527
  Receipt Date: 20091029
  Transmission Date: 20101027
  Serious: Yes (Other)
  Sender: FDA-Public Use
  Company Number: FDAAERSTESTINGFORCHDC27

PATIENT
  Sex: Male

DRUGS (1)
  1. BENYLIN DRY COUGH DM [Suspect]
     Indication: COUGH
     Dosage: TEXT:UNSPECIFIED
     Route: 048
     Dates: start: 20091028, end: 20091029

REACTIONS (1)
  - BLOOD GLUCOSE INCREASED [None]
